FAERS Safety Report 11803501 (Version 1)
Quarter: 2015Q4

REPORT INFORMATION
  Report Type: Spontaneous
  Country: GB (occurrence: GB)
  Receive Date: 20151204
  Receipt Date: 20151204
  Transmission Date: 20160305
  Serious: Yes (Death)
  Sender: FDA-Public Use
  Company Number: GB-TEVA-612314ACC

PATIENT
  Age: 39 Year
  Sex: Male

DRUGS (5)
  1. DEXIMUNE [Suspect]
     Active Substance: CYCLOSPORINE
     Dosage: RECEIVED 100 MG, 50 MG AND 25 MG SOFT CAPSULES
  2. ACCORD HEALTHCARE MYCOPHENOLATE MOFETIL [Suspect]
     Active Substance: MYCOPHENOLATE MOFETIL
     Indication: PRODUCT USED FOR UNKNOWN INDICATION
  3. PREDNISOLONE. [Suspect]
     Active Substance: PREDNISOLONE
     Indication: PRODUCT USED FOR UNKNOWN INDICATION
  4. DEXIMUNE [Suspect]
     Active Substance: CYCLOSPORINE
     Dosage: RECEIVED 100 MG, 50 MG AND 25 MG SOFT CAPSULES
  5. DEXIMUNE [Suspect]
     Active Substance: CYCLOSPORINE
     Indication: PRODUCT USED FOR UNKNOWN INDICATION
     Dosage: RECEIVED 100 MG, 50 MG AND 25 MG SOFT CAPSULES

REACTIONS (1)
  - Death [Fatal]
